FAERS Safety Report 12179653 (Version 1)
Quarter: 2016Q1

REPORT INFORMATION
  Report Type: Spontaneous
  Country: US (occurrence: None)
  Receive Date: 20160314
  Receipt Date: 20160314
  Transmission Date: 20160526
  Serious: Yes (Disabling)
  Sender: FDA-Public Use
  Company Number: None

PATIENT
  Age: 42 Year
  Sex: Female
  Weight: 81.65 kg

DRUGS (2)
  1. ENBREL [Suspect]
     Active Substance: ETANERCEPT
     Indication: RHEUMATOID ARTHRITIS
     Dosage: GIVEN INTO/UNDER THE SKIN
     Dates: start: 20130320
  2. LEXAPRO [Concomitant]
     Active Substance: ESCITALOPRAM OXALATE

REACTIONS (4)
  - Gait disturbance [None]
  - Tremor [None]
  - Coordination abnormal [None]
  - Infection [None]

NARRATIVE: CASE EVENT DATE: 20160307
